FAERS Safety Report 17604164 (Version 2)
Quarter: 2020Q3

REPORT INFORMATION
  Report Type: Spontaneous
  Country: GB (occurrence: GB)
  Receive Date: 20200331
  Receipt Date: 20200828
  Transmission Date: 20201102
  Serious: Yes (Hospitalization, Other)
  Sender: FDA-Public Use
  Company Number: GB-JNJFOC-20200336075

PATIENT
  Age: 80 Year
  Sex: Female

DRUGS (5)
  1. SIMPONI [Suspect]
     Active Substance: GOLIMUMAB
     Indication: RHEUMATOID ARTHRITIS
     Route: 058
  2. TIOTROPIUM [Concomitant]
     Active Substance: TIOTROPIUM
  3. SULFASALAZINE. [Concomitant]
     Active Substance: SULFASALAZINE
     Route: 048
  4. LEFLUNOMIDE. [Concomitant]
     Active Substance: LEFLUNOMIDE
     Indication: RHEUMATOID ARTHRITIS
     Route: 048
  5. MONTELUKAST [Concomitant]
     Active Substance: MONTELUKAST SODIUM
     Dosage: QOD
     Route: 048

REACTIONS (2)
  - Myocardial infarction [Recovering/Resolving]
  - Wound infection [Unknown]

NARRATIVE: CASE EVENT DATE: 20200221
